FAERS Safety Report 22088051 (Version 2)
Quarter: 2023Q2

REPORT INFORMATION
  Report Type: Spontaneous
  Country: US (occurrence: US)
  Receive Date: 20230313
  Receipt Date: 20230405
  Transmission Date: 20230722
  Serious: No
  Sender: FDA-Public Use
  Company Number: US-IDORSIA-003856-2023-US

PATIENT
  Age: 47 Year
  Sex: Male

DRUGS (1)
  1. QUVIVIQ [Suspect]
     Active Substance: DARIDOREXANT
     Indication: Insomnia
     Dosage: 50 MG, QD
     Route: 048
     Dates: start: 20230226, end: 20230301

REACTIONS (1)
  - Abnormal dreams [Recovered/Resolved]

NARRATIVE: CASE EVENT DATE: 20230226
